FAERS Safety Report 5196845-3 (Version None)
Quarter: 2006Q4

REPORT INFORMATION
  Report Type: 
  Country: None (occurrence: None)
  Receive Date: 20061227
  Receipt Date: 20061213
  Transmission Date: 20070319
  Serious: Yes (Other)
  Sender: FDA-Public Use
  Company Number: 2006153139

PATIENT
  Age: 61 Year
  Sex: Female
  Weight: 55.7924 kg

DRUGS (4)
  1. CHANTIX [Suspect]
     Indication: SMOKING CESSATION THERAPY
     Dates: start: 20061122, end: 20061212
  2. ALL OTHER THERAPEUTIC PRODUCTS (ALL OTHER THERAPEUTIC PRODUCTS) [Concomitant]
  3. GENERAL NUTRIENTS/MINERALS/VITAMINS (GENERAL NUTRIENTS, MINERALS NOS, [Concomitant]
  4. DOCUSATE (DOCUSATE) [Concomitant]

REACTIONS (8)
  - ABNORMAL DREAMS [None]
  - FLATULENCE [None]
  - HYPERTENSION [None]
  - MYDRIASIS [None]
  - RETINAL DISORDER [None]
  - RETINAL HAEMORRHAGE [None]
  - VISUAL DISTURBANCE [None]
  - WEIGHT INCREASED [None]
